FAERS Safety Report 4414280-X (Version None)
Quarter: 2004Q2

REPORT INFORMATION
  Report Type: 
  Country: None (occurrence: None)
  Receive Date: 20040630
  Receipt Date: 20040517
  Transmission Date: 20050107
  Serious: No
  Sender: FDA-Public Use
  Company Number: 04P-163-0261071-00

PATIENT
  Age: 57 Year
  Sex: Female
  Weight: 80.7403 kg

DRUGS (9)
  1. HUMIRA [Suspect]
     Indication: RHEUMATOID ARTHRITIS
     Dosage: SEE IMAGE
     Route: 058
     Dates: start: 20040301, end: 20040426
  2. HUMIRA [Suspect]
     Indication: RHEUMATOID ARTHRITIS
     Dosage: SEE IMAGE
     Route: 058
     Dates: start: 20040426
  3. PREDNISONE TAB [Concomitant]
  4. ALENDRONATE SODIUM [Concomitant]
  5. ONE A DAY [Concomitant]
  6. PAROXETINE HYDROCHLORIDE [Concomitant]
  7. BUDESONIDE [Concomitant]
  8. CYCLOBENZAPRINE HYDROCHLORIDE [Concomitant]
  9. CALCIUM CARBONATE [Concomitant]

REACTIONS (3)
  - BLOOD PRESSURE INCREASED [None]
  - DRUG INEFFECTIVE [None]
  - NAUSEA [None]
